FAERS Safety Report 17837088 (Version 1)
Quarter: 2020Q2

REPORT INFORMATION
  Report Type: Spontaneous
  Country: LT (occurrence: LT)
  Receive Date: 20200528
  Receipt Date: 20200528
  Transmission Date: 20200714
  Serious: Yes (Other)
  Sender: FDA-Public Use
  Company Number: LT-BAUSCH-BL-2020-015359

PATIENT
  Age: 73 Year
  Sex: Female
  Weight: 58 kg

DRUGS (7)
  1. BETALOC ZOK [Concomitant]
     Active Substance: METOPROLOL SUCCINATE
     Indication: PRODUCT USED FOR UNKNOWN INDICATION
     Route: 048
  2. EUFILLIN [Suspect]
     Active Substance: AMINOPHYLLINE
     Indication: PAIN
     Route: 041
     Dates: start: 20200303, end: 20200304
  3. DEXAMETHASON [Suspect]
     Active Substance: DEXAMETHASONE
     Indication: PAIN
     Route: 041
     Dates: start: 20200303, end: 20200310
  4. ROSWERA [Concomitant]
     Active Substance: ROSUVASTATIN
     Indication: PRODUCT USED FOR UNKNOWN INDICATION
     Route: 048
  5. APAURIN [Suspect]
     Active Substance: DIAZEPAM
     Indication: PAIN
     Route: 041
     Dates: start: 20200303, end: 20200310
  6. ZOFISTAR [Concomitant]
     Indication: PRODUCT USED FOR UNKNOWN INDICATION
     Route: 048
  7. ANALGIN [METAMIZOLE SODIUM MONOHYDRATE] [Suspect]
     Active Substance: DIPYRONE
     Indication: PAIN
     Route: 041
     Dates: start: 20200303, end: 20200310

REACTIONS (3)
  - Blood pressure decreased [Recovering/Resolving]
  - Hypersensitivity [Recovering/Resolving]
  - Erythema [Recovering/Resolving]

NARRATIVE: CASE EVENT DATE: 20200303
